FAERS Safety Report 10235969 (Version 1)
Quarter: 2014Q2

REPORT INFORMATION
  Report Type: Spontaneous
  Country: US (occurrence: None)
  Receive Date: 20140612
  Receipt Date: 20140612
  Transmission Date: 20141212
  Serious: Yes (Hospitalization)
  Sender: FDA-Public Use
  Company Number: None

PATIENT
  Age: 94 Year
  Sex: Female
  Weight: 49.6 kg

DRUGS (8)
  1. DIGOXIN [Suspect]
     Route: 048
  2. CALCIUM W/ VITAMIN D [Concomitant]
  3. WARFARIN [Concomitant]
  4. MULTIVITAMIN [Concomitant]
  5. FUROSEMIDE [Concomitant]
  6. LISINOPRIL [Concomitant]
  7. RANITIDINE [Concomitant]
  8. SOTALOL [Concomitant]

REACTIONS (3)
  - Bradycardia [None]
  - Toxicity to various agents [None]
  - Cardioactive drug level increased [None]
